FAERS Safety Report 10201357 (Version 1)
Quarter: 2014Q2

REPORT INFORMATION
  Report Type: Spontaneous
  Country: US (occurrence: US)
  Receive Date: 20140528
  Receipt Date: 20140528
  Transmission Date: 20141212
  Serious: No
  Sender: FDA-Public Use
  Company Number: US-ASTRAZENECA-2014SE34398

PATIENT
  Age: 61 Year
  Sex: Female
  Weight: 55.8 kg

DRUGS (9)
  1. METOPROLOL SUCCINATE [Suspect]
     Indication: HYPERTENSION
     Route: 048
  2. CRESTOR [Suspect]
     Indication: HYPERLIPIDAEMIA
     Route: 048
     Dates: start: 2003
  3. DILTIAZEM [Concomitant]
     Indication: BLOOD PRESSURE ABNORMAL
     Route: 048
     Dates: start: 2013
  4. DEXILANT [Concomitant]
     Indication: GASTROOESOPHAGEAL REFLUX DISEASE
     Route: 048
     Dates: start: 2010
  5. ALLEGRA [Concomitant]
     Indication: MULTIPLE ALLERGIES
     Route: 048
  6. FLUTICASONE [Concomitant]
     Indication: MULTIPLE ALLERGIES
     Dosage: 50MCG DAILY
     Route: 045
  7. PATANASE [Concomitant]
     Indication: MULTIPLE ALLERGIES
     Dosage: 665MCG PRN
     Route: 045
     Dates: start: 2012
  8. FLOVENT [Concomitant]
     Indication: ASTHMA
     Dosage: 110MCG PRN
     Route: 055
     Dates: start: 2012
  9. XOPENEX [Concomitant]
     Indication: ASTHMA
     Dosage: 45MCG UNK
     Route: 055
     Dates: start: 2012

REACTIONS (6)
  - Migraine [Not Recovered/Not Resolved]
  - Bronchopneumonia [Recovered/Resolved]
  - Menopause [Not Recovered/Not Resolved]
  - Dysphonia [Unknown]
  - Chest pain [Unknown]
  - Drug ineffective [Unknown]
